FAERS Safety Report 21450194 (Version 2)
Quarter: 2022Q4

REPORT INFORMATION
  Report Type: Report from Study
  Country: IT (occurrence: IT)
  Receive Date: 20221013
  Receipt Date: 20221017
  Transmission Date: 20230112
  Serious: Yes (Hospitalization)
  Sender: FDA-Public Use
  Company Number: None

PATIENT
  Age: 51 Year
  Sex: Female

DRUGS (2)
  1. IBUPROFEN [Suspect]
     Active Substance: IBUPROFEN
     Indication: COVID-19
     Dosage: 1 DOSE UNIT, DAILY FREQUENCY
     Route: 048
  2. FLUIMUCIL [Concomitant]
     Active Substance: ACETYLCYSTEINE
     Indication: COVID-19
     Dosage: UNK
     Route: 065

REACTIONS (3)
  - Urticaria [Recovering/Resolving]
  - Medication error [Unknown]
  - Product prescribing error [Recovered/Resolved]

NARRATIVE: CASE EVENT DATE: 20220813
